FAERS Safety Report 10362040 (Version 2)
Quarter: 2014Q3

REPORT INFORMATION
  Report Type: Spontaneous
  Country: US (occurrence: US)
  Receive Date: 20140805
  Receipt Date: 20140805
  Transmission Date: 20150326
  Serious: Yes (Hospitalization, Other)
  Sender: FDA-Public Use
  Company Number: US-009507513-2009SP023524

PATIENT
  Sex: Female
  Weight: 85.73 kg

DRUGS (3)
  1. NUVARING [Suspect]
     Active Substance: ETHINYL ESTRADIOL\ETONOGESTREL
     Dosage: UNK
     Route: 067
     Dates: start: 200712, end: 200808
  2. HORMONAL CONTRACEPTIVES (UNSPECIFIED) [Suspect]
     Active Substance: UNSPECIFIED INGREDIENT
     Indication: ORAL CONTRACEPTION
     Dates: end: 200808
  3. NUVARING [Suspect]
     Active Substance: ETHINYL ESTRADIOL\ETONOGESTREL
     Indication: CONTRACEPTION
     Dosage: UNK
     Route: 067
     Dates: start: 200703, end: 200708

REACTIONS (4)
  - Abdominal pain [Unknown]
  - Pulmonary embolism [Unknown]
  - Menorrhagia [Unknown]
  - Ovarian cyst [Unknown]

NARRATIVE: CASE EVENT DATE: 200710
